FAERS Safety Report 12464549 (Version 1)
Quarter: 2016Q2

REPORT INFORMATION
  Report Type: Spontaneous
  Country: US (occurrence: None)
  Receive Date: 20160613
  Receipt Date: 20160613
  Transmission Date: 20160815
  Serious: Yes (Other)
  Sender: FDA-Public Use
  Company Number: None

PATIENT
  Age: 74 Year
  Sex: Female
  Weight: 44.91 kg

DRUGS (1)
  1. IMATINIB MES TAB 100MG [Suspect]
     Active Substance: IMATINIB MESYLATE
     Indication: GASTROINTESTINAL CARCINOMA
     Route: 048
     Dates: start: 20160606, end: 20160608

REACTIONS (10)
  - Hypoaesthesia oral [None]
  - Product substitution issue [None]
  - Pain in extremity [None]
  - Condition aggravated [None]
  - Discomfort [None]
  - Nausea [None]
  - Palpitations [None]
  - Pain [None]
  - Flatulence [None]
  - Burning sensation [None]

NARRATIVE: CASE EVENT DATE: 20160607
